FAERS Safety Report 6509171-4 (Version None)
Quarter: 2009Q4

REPORT INFORMATION
  Report Type: 
  Country: None (occurrence: None)
  Receive Date: 20091221
  Receipt Date: 20091214
  Transmission Date: 20100525
  Serious: Yes (Other)
  Sender: FDA-Public Use
  Company Number: GB-GILEAD-2009-0025973

PATIENT
  Age: 47 Year
  Sex: Male
  Weight: 60 kg

DRUGS (11)
  1. VIREAD [Suspect]
     Indication: HIV INFECTION
     Route: 048
     Dates: start: 20080305, end: 20080820
  2. ADCAL-D3 [Concomitant]
     Indication: VITAMIN D DEFICIENCY
  3. ASPIRIN [Concomitant]
     Indication: CARDIOVASCULAR DISORDER
     Route: 048
  4. ASPIRIN [Concomitant]
     Indication: PROPHYLAXIS
  5. ATORVASTATIN CALCIUM [Concomitant]
     Indication: HYPERCHOLESTEROLAEMIA
     Route: 048
  6. CO-TRIMOXAZOLE [Concomitant]
     Indication: PNEUMOCYSTIS JIROVECI PNEUMONIA
     Route: 048
  7. CO-TRIMOXAZOLE [Concomitant]
     Indication: PROPHYLAXIS
  8. ERGOCALCIFEROL [Concomitant]
     Indication: VITAMIN D DEFICIENCY
  9. GLICLAZIDE [Concomitant]
     Indication: DIABETES MELLITUS
  10. KALETRA [Concomitant]
     Indication: HIV INFECTION
  11. KIVEXA [Concomitant]
     Indication: HIV INFECTION

REACTIONS (6)
  - ACIDOSIS [None]
  - FANCONI SYNDROME ACQUIRED [None]
  - GLYCOSURIA [None]
  - HYPOPHOSPHATAEMIA [None]
  - PROTEINURIA [None]
  - RETINOPATHY [None]
